FAERS Safety Report 5845974-7 (Version None)
Quarter: 2008Q3

REPORT INFORMATION
  Report Type: 
  Country: None (occurrence: None)
  Receive Date: 20080813
  Receipt Date: 20080805
  Transmission Date: 20090109
  Serious: Yes (Hospitalization)
  Sender: FDA-Public Use
  Company Number: 2008AL003956

PATIENT
  Age: 70 Year
  Sex: Male
  Weight: 87.0906 kg

DRUGS (7)
  1. DIGOXIN [Suspect]
     Indication: ATRIAL FIBRILLATION
     Dosage: 0.25MG DAILY PO
     Route: 048
  2. LANOXIN [Concomitant]
  3. LISINOPRIL [Concomitant]
  4. TOPROL-XL [Concomitant]
  5. LASIX [Concomitant]
  6. COUMADIN [Concomitant]
  7. VITAMIN TAB [Concomitant]

REACTIONS (7)
  - CONVULSION [None]
  - DIARRHOEA [None]
  - DIZZINESS [None]
  - HEART RATE DECREASED [None]
  - HYPOAESTHESIA [None]
  - NAUSEA [None]
  - PARAESTHESIA [None]
